FAERS Safety Report 18952054 (Version 1)
Quarter: 2021Q1

REPORT INFORMATION
  Report Type: Spontaneous
  Country: NL (occurrence: NL)
  Receive Date: 20210301
  Receipt Date: 20210301
  Transmission Date: 20210420
  Serious: Yes (Other)
  Sender: FDA-Public Use
  Company Number: NL-SUN PHARMACEUTICAL INDUSTRIES LTD-2021RR-283199

PATIENT
  Age: 45 Year
  Sex: Female
  Weight: 64 kg

DRUGS (3)
  1. ETHINYLESTRADIOL/LEVONORGESTREL(TRINOR/TRIGYNON) / BRAND NAME NOT S... [Concomitant]
     Indication: PRODUCT USED FOR UNKNOWN INDICATION
     Dosage: UNK
     Route: 065
  2. PREGABALIN. [Suspect]
     Active Substance: PREGABALIN
     Indication: NEURALGIA
     Dosage: CAPSULE 75 MG 1X PER DAY 1 PIECE
     Route: 065
     Dates: start: 20210125, end: 20210201
  3. IBUPROFEN DRAGEE 400MG / BRAND NAME NOT SPECIFIEDIBUPROFEN DRAGEE 4... [Concomitant]
     Indication: PRODUCT USED FOR UNKNOWN INDICATION
     Dosage: TABLET, 400 MG (MILLIGRAM) ()
     Route: 065

REACTIONS (8)
  - Dizziness [Recovering/Resolving]
  - Headache [Recovered/Resolved]
  - Somnolence [Not Recovered/Not Resolved]
  - Vision blurred [Not Recovered/Not Resolved]
  - Disturbance in attention [Not Recovered/Not Resolved]
  - Nausea [Not Recovered/Not Resolved]
  - Eye haemorrhage [Recovering/Resolving]
  - Influenza like illness [Not Recovered/Not Resolved]

NARRATIVE: CASE EVENT DATE: 20210126
